FAERS Safety Report 16844294 (Version 1)
Quarter: 2019Q4

REPORT INFORMATION
  Report Type: Spontaneous
  Country: US (occurrence: US)
  Receive Date: 20190923
  Receipt Date: 20190923
  Transmission Date: 20200122
  Serious: Yes (Other)
  Sender: FDA-Public Use
  Company Number: None

PATIENT
  Age: 73 Year
  Sex: Female

DRUGS (12)
  1. ELIQUIS [Concomitant]
     Active Substance: APIXABAN
  2. DICLOFENAC GEL [Concomitant]
     Active Substance: DICLOFENAC
  3. CEFUROXIME. [Concomitant]
     Active Substance: CEFUROXIME
  4. LEVOTHYROXIN [Concomitant]
     Active Substance: LEVOTHYROXINE
  5. ENOXAPARIN [Concomitant]
     Active Substance: ENOXAPARIN
  6. ALENDRONATE [Concomitant]
     Active Substance: ALENDRONATE SODIUM
  7. HYDROCO/APAP [Concomitant]
     Active Substance: ACETAMINOPHEN\HYDROCODONE
  8. BACLOFEN. [Concomitant]
     Active Substance: BACLOFEN
  9. DOFETILIDE. [Suspect]
     Active Substance: DOFETILIDE
     Indication: ATRIAL FIBRILLATION
     Route: 048
     Dates: start: 20180117
  10. TERBINAFINE. [Concomitant]
     Active Substance: TERBINAFINE
  11. LORAZEPAM. [Concomitant]
     Active Substance: LORAZEPAM
  12. MYRBETRIQ [Concomitant]
     Active Substance: MIRABEGRON

REACTIONS (1)
  - Cardiac pacemaker insertion [None]
